FAERS Safety Report 9328663 (Version 1)
Quarter: 2013Q2

REPORT INFORMATION
  Report Type: Spontaneous
  Country: US (occurrence: US)
  Receive Date: 20130604
  Receipt Date: 20130604
  Transmission Date: 20140414
  Serious: No
  Sender: FDA-Public Use
  Company Number: US-SANOFI-AVENTIS-2013SA009072

PATIENT
  Sex: Female

DRUGS (5)
  1. LANTUS SOLOSTAR [Suspect]
     Indication: TYPE 2 DIABETES MELLITUS
     Dosage: DOSE:22 UNIT(S)
     Dates: start: 201211
  2. SOLOSTAR [Suspect]
  3. GLIPIZIDE [Concomitant]
  4. GLIPIZIDE [Concomitant]
  5. NOVOLOG [Concomitant]

REACTIONS (2)
  - Blood glucose increased [Unknown]
  - Injection site bruising [Unknown]
